FAERS Safety Report 8865145 (Version 1)
Quarter: 2012Q4

REPORT INFORMATION
  Report Type: 
  Country: US (occurrence: US)
  Receive Date: 20121024
  Receipt Date: 20121024
  Transmission Date: 20130627
  Serious: No
  Sender: FDA-Public Use
  Company Number: US-AMGEN-USASP2012001296

PATIENT
  Age: 57 Year
  Sex: Male
  Weight: 90.7 kg

DRUGS (6)
  1. ENBREL [Suspect]
     Indication: PRODUCT USED FOR UNKNOWN INDICATION
     Dosage: 50 mg, qwk
     Route: 058
  2. TIMOPTIC [Concomitant]
     Dosage: 0.25 %, UNK
  3. XANAX [Concomitant]
     Dosage: 1 mg, UNK
  4. OXYCODONE [Concomitant]
     Dosage: 10 mg, UNK
  5. ASA [Concomitant]
     Dosage: 81 mg, UNK
  6. ALEVE [Concomitant]
     Dosage: 220 mg, UNK

REACTIONS (2)
  - Fall [Unknown]
  - Wrist fracture [Unknown]
